FAERS Safety Report 23797475 (Version 1)
Quarter: 2024Q2

REPORT INFORMATION
  Report Type: Report from Study
  Country: US (occurrence: US)
  Receive Date: 20240430
  Receipt Date: 20240430
  Transmission Date: 20240716
  Serious: Yes (Other)
  Sender: FDA-Public Use
  Company Number: US-ABBVIE-5737844

PATIENT
  Age: 64 Year
  Sex: Female

DRUGS (3)
  1. RINVOQ [Suspect]
     Active Substance: UPADACITINIB
     Indication: Dermatitis atopic
     Route: 048
     Dates: start: 20230508
  2. RINVOQ [Suspect]
     Active Substance: UPADACITINIB
     Indication: Dermatitis atopic
     Dosage: 2 RINVOQ PILLS PER DAY FOR 5 DAYS
     Route: 048
     Dates: start: 20240416, end: 20240421
  3. RINVOQ [Suspect]
     Active Substance: UPADACITINIB
     Indication: Dermatitis atopic
     Route: 048
     Dates: start: 20240421

REACTIONS (4)
  - Optic nerve injury [Not Recovered/Not Resolved]
  - Eczema [Not Recovered/Not Resolved]
  - Blindness [Not Recovered/Not Resolved]
  - Skin discharge [Unknown]

NARRATIVE: CASE EVENT DATE: 20240201
